FAERS Safety Report 19088826 (Version 2)
Quarter: 2021Q2

REPORT INFORMATION
  Report Type: Spontaneous
  Country: US (occurrence: US)
  Receive Date: 20210403
  Receipt Date: 20210525
  Transmission Date: 20210717
  Serious: Yes (Hospitalization, Other)
  Sender: FDA-Public Use
  Company Number: US-AUROBINDO-AUR-APL-2021-013305

PATIENT
  Age: 85 Year
  Sex: Female
  Weight: 50.8 kg

DRUGS (10)
  1. APIXABAN [Concomitant]
     Active Substance: APIXABAN
     Indication: AMYLOIDOSIS SENILE
  2. TAFAMIDIS [Interacting]
     Active Substance: TAFAMIDIS MEGLUMINE
     Indication: CARDIOMYOPATHY
     Dosage: 61 MILLIGRAM, ONCE A DAY
     Route: 048
  3. AMIODARONE HYDROCHLORIDE. [Interacting]
     Active Substance: AMIODARONE HYDROCHLORIDE
     Indication: AMYLOIDOSIS SENILE
  4. AMIODARONE HYDROCHLORIDE. [Suspect]
     Active Substance: AMIODARONE HYDROCHLORIDE
     Indication: CARDIOMYOPATHY
     Dosage: 200 MILLIGRAM, ONCE A DAY
     Route: 048
  5. TORSEMIDE. [Concomitant]
     Active Substance: TORSEMIDE
     Indication: CARDIOMYOPATHY
  6. ATORVASTATIN [Interacting]
     Active Substance: ATORVASTATIN
     Indication: AMYLOIDOSIS SENILE
  7. TAFAMIDIS [Interacting]
     Active Substance: TAFAMIDIS MEGLUMINE
     Indication: AMYLOIDOSIS SENILE
  8. TORSEMIDE. [Concomitant]
     Active Substance: TORSEMIDE
     Indication: AMYLOIDOSIS SENILE
     Dosage: 20 MILLIGRAM, ONCE A DAY
     Route: 065
  9. ATORVASTATIN [Interacting]
     Active Substance: ATORVASTATIN
     Indication: CARDIOMYOPATHY
     Dosage: 80 MILLIGRAM, ONCE A DAY
     Route: 048
  10. APIXABAN [Concomitant]
     Active Substance: APIXABAN
     Indication: CARDIOMYOPATHY
     Dosage: 2.5 MILLIGRAM, TWO TIMES A DAY
     Route: 065

REACTIONS (4)
  - Alanine aminotransferase increased [Recovered/Resolved]
  - Drug interaction [Recovering/Resolving]
  - Rhabdomyolysis [Recovering/Resolving]
  - Aspartate aminotransferase increased [Recovered/Resolved]
